FAERS Safety Report 14349634 (Version 1)
Quarter: 2018Q1

REPORT INFORMATION
  Report Type: Spontaneous
  Country: US (occurrence: US)
  Receive Date: 20180103
  Receipt Date: 20180103
  Transmission Date: 20180509
  Serious: Yes (Hospitalization)
  Sender: FDA-Public Use
  Company Number: None

PATIENT
  Age: 66 Year
  Sex: Male

DRUGS (3)
  1. B-12 TABLETS [Concomitant]
  2. LUPRON [Suspect]
     Active Substance: LEUPROLIDE ACETATE
     Indication: NEOPLASM PROSTATE
     Dosage: ?          OTHER FREQUENCY:Q3M;?
     Route: 030
     Dates: start: 20150804
  3. B-1 TABLETS [Concomitant]

REACTIONS (1)
  - Cancer pain [None]

NARRATIVE: CASE EVENT DATE: 20180102
